FAERS Safety Report 18156524 (Version 1)
Quarter: 2020Q3

REPORT INFORMATION
  Report Type: Spontaneous
  Country: US (occurrence: US)
  Receive Date: 20200816
  Receipt Date: 20200816
  Transmission Date: 20201103
  Serious: Yes (Disabling, Other)
  Sender: FDA-Public Use
  Company Number: None

PATIENT
  Age: 82 Year
  Sex: Female

DRUGS (3)
  1. METOPROLOL SUCCINATE EXTENDED?RELEASE TABLETS [Suspect]
     Active Substance: METOPROLOL SUCCINATE
     Indication: BLOOD PRESSURE MEASUREMENT
     Route: 048
     Dates: start: 20200809, end: 20200816
  2. FLECAINIDE 50MG [Concomitant]
     Active Substance: FLECAINIDE
     Dates: start: 20200329, end: 20200816
  3. ELIQUIS [Concomitant]
     Active Substance: APIXABAN
     Dates: start: 20170814, end: 20200816

REACTIONS (5)
  - Anxiety [None]
  - Agitation [None]
  - Grip strength decreased [None]
  - Tremor [None]
  - Product substitution issue [None]

NARRATIVE: CASE EVENT DATE: 20200810
